FAERS Safety Report 8515573-7 (Version None)
Quarter: 2012Q3

REPORT INFORMATION
  Report Type: 
  Country: None (occurrence: None)
  Receive Date: 20120717
  Receipt Date: 20120710
  Transmission Date: 20120928
  Serious: Yes (Hospitalization, Other)
  Sender: FDA-Public Use
  Company Number: PHHY2012US059298

PATIENT
  Age: 65 Year
  Sex: Female

DRUGS (4)
  1. PANTOPRAZOLE [Concomitant]
     Dosage: 8 MG/H, UNK
  2. OCTREOTIDE ACETATE [Suspect]
     Indication: GASTROINTESTINAL HAEMORRHAGE
     Dosage: 50 UG/HR, UNK
  3. MIDAZOLAM [Concomitant]
  4. PROPOFOL [Suspect]
     Route: 041

REACTIONS (2)
  - CARDIAC ARREST [None]
  - BRADYCARDIA [None]
